FAERS Safety Report 24468436 (Version 2)
Quarter: 2024Q4

REPORT INFORMATION
  Report Type: Spontaneous
  Country: US (occurrence: US)
  Receive Date: 20241018
  Receipt Date: 20241113
  Transmission Date: 20250114
  Serious: Yes (Other)
  Sender: PFIZER
  Company Number: US-PFIZER INC-202400278785

PATIENT
  Age: 56 Year
  Sex: Female
  Weight: 86.64 kg

DRUGS (2)
  1. XELJANZ XR [Suspect]
     Active Substance: TOFACITINIB CITRATE
     Indication: Rheumatoid arthritis
     Dosage: 11 MG, 1X/DAY
     Route: 048
  2. XELJANZ XR [Suspect]
     Active Substance: TOFACITINIB CITRATE
     Indication: Osteoarthritis

REACTIONS (7)
  - Spinal operation [Unknown]
  - Arthralgia [Unknown]
  - Myalgia [Unknown]
  - Dry mouth [Unknown]
  - Hypertension [Unknown]
  - Back pain [Unknown]
  - Therapeutic product effect incomplete [Unknown]

NARRATIVE: CASE EVENT DATE: 20240101
